FAERS Safety Report 10219678 (Version 5)
Quarter: 2015Q3

REPORT INFORMATION
  Report Type: Spontaneous
  Country: US (occurrence: US)
  Receive Date: 20140605
  Receipt Date: 20150901
  Transmission Date: 20151125
  Serious: Yes (Hospitalization, Other)
  Sender: FDA-Public Use
  Company Number: US-GLAXOSMITHKLINE-A1075739A

PATIENT
  Sex: Female

DRUGS (1)
  1. ALLI [Suspect]
     Active Substance: ORLISTAT
     Indication: WEIGHT DECREASED
     Dosage: UNK, U
     Route: 048
     Dates: start: 201103, end: 201106

REACTIONS (3)
  - Hepatitis [Not Recovered/Not Resolved]
  - Hepatic failure [Unknown]
  - Hyperbilirubinaemia [Unknown]
